FAERS Safety Report 13713320 (Version 1)
Quarter: 2017Q3

REPORT INFORMATION
  Report Type: Spontaneous
  Country: JP (occurrence: JP)
  Receive Date: 20170704
  Receipt Date: 20170704
  Transmission Date: 20171127
  Serious: Yes (Death)
  Sender: FDA-Public Use
  Company Number: JP-ENDO PHARMACEUTICALS INC-2017-003686

PATIENT
  Age: 84 Year
  Sex: Female

DRUGS (2)
  1. RHEUMATREX [Suspect]
     Active Substance: METHOTREXATE SODIUM
     Indication: RHEUMATOID ARTHRITIS
     Dosage: WEEKLY DOSES OF 6-10 MG DIVIDED INTO 2 OR 3 DOSES EVERY 12 H
     Route: 048
     Dates: start: 2004, end: 201008
  2. PREDNISOLONE. [Concomitant]
     Active Substance: PREDNISOLONE
     Indication: PRODUCT USED FOR UNKNOWN INDICATION
     Dosage: UNK UNK, UNKNOWN
     Route: 065
     Dates: start: 2004

REACTIONS (2)
  - Myelodysplastic syndrome [Fatal]
  - Acute myeloid leukaemia [Fatal]
